FAERS Safety Report 8102256 (Version 4)
Quarter: 2012Q4

REPORT INFORMATION
  Report Type: Spontaneous
  Country: DE (occurrence: None)
  Receive Date: 20110811
  Receipt Date: 20120816
  Transmission Date: 20130627
  Serious: Yes (Death)
  Sender: FDA-Public Use
  Company Number: EU-2011-10135

PATIENT
  Age: 59 Year
  Sex: Male
  Weight: 87 kg

DRUGS (7)
  1. SAMSCA [Suspect]
     Indication: INAPPROPRIATE ANTIDIURETIC HORMONE SECRETION
     Dosage: 15 MG MILLIGRAM(S), DAILY DOSE, ORAL
     Route: 048
     Dates: start: 20110516, end: 20110708
  2. AMLODIPIN (AMLODIPIN) [Concomitant]
  3. TORASEMID (TORASEMIDE) [Concomitant]
  4. CISPLATIN (CISPLATIN) [Concomitant]
  5. ETOPOSID (ETOPOSIDE) [Concomitant]
  6. ZOLEDRONATE (ZOLEDRONATE) [Concomitant]
  7. HEPARIN (HEPARIN) [Concomitant]

REACTIONS (3)
  - Peripheral embolism [None]
  - Pulmonary embolism [None]
  - Peripheral ischaemia [None]
